FAERS Safety Report 7416431-1 (Version None)
Quarter: 2011Q2

REPORT INFORMATION
  Report Type: 
  Country: None (occurrence: None)
  Receive Date: 20110414
  Receipt Date: 20110404
  Transmission Date: 20111010
  Serious: Yes (Other)
  Sender: FDA-Public Use
  Company Number: US-AMGEN-USASP2011010124

PATIENT
  Age: 67 Year
  Sex: Female
  Weight: 79.365 kg

DRUGS (4)
  1. ENBREL [Suspect]
     Indication: RHEUMATOID ARTHRITIS
     Dosage: 25 MG, UNK
  2. ENBREL [Suspect]
     Dosage: 50 MG, QWK
     Dates: start: 20030101
  3. AZULFIDINE [Concomitant]
     Dosage: UNK
     Dates: start: 20040521
  4. METHOTREXATE [Concomitant]
     Dosage: 1 MG, UNK
     Dates: start: 20031008

REACTIONS (1)
  - LUNG NEOPLASM MALIGNANT [None]
